FAERS Safety Report 4886175-9 (Version None)
Quarter: 2006Q1

REPORT INFORMATION
  Report Type: 
  Country: None (occurrence: None)
  Receive Date: 20060120
  Receipt Date: 20060116
  Transmission Date: 20060701
  Serious: Yes (Disabling)
  Sender: FDA-Public Use
  Company Number: GB-GLAXOSMITHKLINE-B0406763A

PATIENT
  Age: 85 Year
  Sex: Female
  Weight: 59 kg

DRUGS (5)
  1. LITHIUM CARBONATE [Suspect]
     Indication: DEPRESSION
     Dosage: 400MG PER DAY
     Route: 048
     Dates: end: 20051102
  2. HYDROXYUREA [Concomitant]
     Dosage: 500MG PER DAY
     Route: 048
  3. SERTRALINE [Concomitant]
     Indication: DEPRESSION
     Dosage: 50MG PER DAY
     Route: 048
  4. LANSOPRAZOLE [Concomitant]
     Dosage: 75MG PER DAY
     Route: 048
  5. CO-CODAMOL [Concomitant]
     Indication: PAIN
     Route: 048

REACTIONS (4)
  - COORDINATION ABNORMAL [None]
  - MOBILITY DECREASED [None]
  - PARKINSONISM [None]
  - TREMOR [None]
